FAERS Safety Report 22081068 (Version 1)
Quarter: 2023Q1

REPORT INFORMATION
  Report Type: Spontaneous
  Country: CO (occurrence: CO)
  Receive Date: 20230309
  Receipt Date: 20230309
  Transmission Date: 20230418
  Serious: Yes (Death)
  Sender: FDA-Public Use
  Company Number: CO-BIOMARINAP-CO-2023-148974

PATIENT

DRUGS (1)
  1. NAGLAZYME [Suspect]
     Active Substance: GALSULFASE
     Indication: Mucopolysaccharidosis VI
     Dosage: UNK, QW
     Route: 042
     Dates: start: 20170117

REACTIONS (2)
  - Myocardial infarction [Fatal]
  - Umbilical hernia [Unknown]

NARRATIVE: CASE EVENT DATE: 20230307
